FAERS Safety Report 7352112-0 (Version None)
Quarter: 2011Q1

REPORT INFORMATION
  Report Type: 
  Country: None (occurrence: None)
  Receive Date: 20110315
  Receipt Date: 20110303
  Transmission Date: 20110831
  Serious: Yes (Hospitalization, Other)
  Sender: FDA-Public Use
  Company Number: DE-ELI_LILLY_AND_COMPANY-DE201102002917

PATIENT
  Age: 70 Year
  Sex: Female

DRUGS (2)
  1. METFORMIN [Concomitant]
  2. BYETTA [Suspect]
     Dosage: UNK, UNK
     Route: 058
     Dates: start: 20080101, end: 20080401

REACTIONS (3)
  - NAUSEA [None]
  - DIZZINESS [None]
  - PANCREATIC CARCINOMA [None]
